FAERS Safety Report 12923032 (Version 2)
Quarter: 2016Q4

REPORT INFORMATION
  Report Type: Report from Study
  Country: FR (occurrence: FR)
  Receive Date: 20161108
  Receipt Date: 20161118
  Transmission Date: 20170207
  Serious: Yes (Hospitalization)
  Sender: FDA-Public Use
  Company Number: FR-B.I. PHARMACEUTICALS,INC./RIDGEFIELD-2016-BI-072738

PATIENT
  Sex: Female
  Weight: 70 kg

DRUGS (4)
  1. INIPOMP [Concomitant]
     Active Substance: PANTOPRAZOLE SODIUM
     Indication: DRUG THERAPY
     Route: 048
  2. APROVEL [Concomitant]
     Active Substance: IRBESARTAN
     Indication: ACUTE CORONARY SYNDROME
     Route: 048
     Dates: start: 20160326
  3. DABIGATRAN [Suspect]
     Active Substance: DABIGATRAN
     Indication: ACUTE CORONARY SYNDROME
     Route: 048
     Dates: start: 20160401, end: 20160908
  4. PLAVIX [Concomitant]
     Active Substance: CLOPIDOGREL BISULFATE
     Indication: ACUTE CORONARY SYNDROME
     Route: 048
     Dates: start: 20160403

REACTIONS (1)
  - Tachycardia [Recovered/Resolved]

NARRATIVE: CASE EVENT DATE: 20160906
